FAERS Safety Report 12385906 (Version 5)
Quarter: 2016Q3

REPORT INFORMATION
  Report Type: Spontaneous
  Country: PL (occurrence: PL)
  Receive Date: 20160519
  Receipt Date: 20160923
  Transmission Date: 20161109
  Serious: Yes (Death, Life-Threatening, Hospitalization)
  Sender: FDA-Public Use
  Company Number: PL-B.I. PHARMACEUTICALS,INC./RIDGEFIELD-2016-BI-31345PN

PATIENT
  Age: 79 Year
  Sex: Female
  Weight: 72 kg

DRUGS (1)
  1. PRADAXA [Suspect]
     Active Substance: DABIGATRAN ETEXILATE MESYLATE
     Indication: ATRIAL FIBRILLATION
     Dosage: 300 MG
     Route: 048
     Dates: start: 2014

REACTIONS (7)
  - Cerebral haemorrhage [Fatal]
  - Retrograde amnesia [Unknown]
  - Intracranial haematoma [Unknown]
  - Blood pressure abnormal [Unknown]
  - Syncope [Unknown]
  - Fall [Unknown]
  - Accident at home [Unknown]

NARRATIVE: CASE EVENT DATE: 20160516
